FAERS Safety Report 7869902-8 (Version None)
Quarter: 2011Q4

REPORT INFORMATION
  Report Type: 
  Country: None (occurrence: None)
  Receive Date: 20111028
  Receipt Date: 20110111
  Transmission Date: 20120403
  Serious: No
  Sender: FDA-Public Use
  Company Number: US-AMGEN-USASP2011001674

PATIENT
  Sex: Female

DRUGS (2)
  1. ENBREL [Suspect]
     Indication: RHEUMATOID ARTHRITIS
     Dosage: 50 MG, QWK
     Dates: start: 20101101, end: 20110103
  2. ROBITUSSIN                         /00048001/ [Concomitant]

REACTIONS (3)
  - RHINORRHOEA [None]
  - DYSPNOEA [None]
  - FATIGUE [None]
